FAERS Safety Report 4280363-0 (Version None)
Quarter: 2004Q1

REPORT INFORMATION
  Report Type: 
  Country: None (occurrence: None)
  Receive Date: 20040126
  Receipt Date: 20040114
  Transmission Date: 20041129
  Serious: Yes (Death)
  Sender: FDA-Public Use
  Company Number: 04H-163-0247091-00

PATIENT
  Sex: 0

DRUGS (2)
  1. DEXTRAN 40 10% IN SODIUM CHLORIDE 0.9% [Suspect]
     Indication: THROMBOSIS PROPHYLAXIS
     Dosage: 20 CC, PER HOUR X 120 HOURS,  (THERAPY DATES: BETWEEN AUG 1998 + SEP 2000 - BETWEEN AUG 1998 + SEP 2
  2. HEPARIN [Concomitant]

REACTIONS (1)
  - MYOCARDIAL INFARCTION [None]
